FAERS Safety Report 15832777 (Version 11)
Quarter: 2020Q2

REPORT INFORMATION
  Report Type: Spontaneous
  Country: US (occurrence: US)
  Receive Date: 20190116
  Receipt Date: 20200608
  Transmission Date: 20200713
  Serious: No
  Sender: FDA-Public Use
  Company Number: US-ACTELION-A-NJ2019-184553

PATIENT
  Age: 23 Year
  Sex: Female
  Weight: 82.54 kg

DRUGS (5)
  1. REMODULIN [Suspect]
     Active Substance: TREPROSTINIL
     Indication: PRODUCT USED FOR UNKNOWN INDICATION
     Route: 058
  2. ORENITRAM [Suspect]
     Active Substance: TREPROSTINIL
     Dosage: 2.25 MG, TID
     Route: 065
  3. ORENITRAM [Suspect]
     Active Substance: TREPROSTINIL
     Indication: PRODUCT USED FOR UNKNOWN INDICATION
     Dosage: 2.5 MG, TID
     Route: 048
  4. SILDENAFIL. [Concomitant]
     Active Substance: SILDENAFIL
  5. OPSUMIT [Suspect]
     Active Substance: MACITENTAN
     Indication: PULMONARY ARTERIAL HYPERTENSION
     Dosage: 10 MG, QD
     Route: 048

REACTIONS (23)
  - Nausea [Unknown]
  - Administration site pain [Unknown]
  - Discomfort [Recovered/Resolved]
  - Catheter site vesicles [Unknown]
  - Abdominal discomfort [Unknown]
  - Eating disorder symptom [Unknown]
  - Inappropriate schedule of product administration [Recovered/Resolved]
  - Chest pain [Unknown]
  - Vomiting [Unknown]
  - Pain in jaw [Unknown]
  - Dizziness [Unknown]
  - Erythema [Unknown]
  - Malaise [Unknown]
  - Dyspnoea exertional [Unknown]
  - Anxiety [Unknown]
  - Diarrhoea [Unknown]
  - Headache [Unknown]
  - Hyperhidrosis [Unknown]
  - Muscle spasms [Unknown]
  - Feeling of body temperature change [Unknown]
  - Fatigue [Unknown]
  - Stress [Unknown]
  - Feeling abnormal [Unknown]

NARRATIVE: CASE EVENT DATE: 20190402
